FAERS Safety Report 7200268-2 (Version None)
Quarter: 2010Q4

REPORT INFORMATION
  Report Type: 
  Country: None (occurrence: None)
  Receive Date: 20101228
  Receipt Date: 20101218
  Transmission Date: 20110411
  Serious: Yes (Death)
  Sender: FDA-Public Use
  Company Number: B0668260A

PATIENT
  Age: 47 Year
  Sex: Female
  Weight: 57.7 kg

DRUGS (4)
  1. MARAVIROC [Suspect]
     Indication: HIV INFECTION
     Dosage: 300MG TWICE PER DAY
     Dates: start: 20090616, end: 20100727
  2. VIREAD [Concomitant]
     Indication: HIV INFECTION
     Dosage: 300MG TWO TIMES PER WEEK
     Dates: start: 20100708, end: 20100727
  3. PREZISTA [Concomitant]
     Indication: HIV INFECTION
     Dosage: 400MG TWICE PER DAY
     Dates: start: 20100708, end: 20100727
  4. NORVIR [Concomitant]
     Indication: HIV INFECTION
     Dosage: 100MG PER DAY
     Dates: start: 20100708, end: 20100727

REACTIONS (1)
  - MYOCARDIAL INFARCTION [None]
